FAERS Safety Report 5308602-5 (Version None)
Quarter: 2007Q2

REPORT INFORMATION
  Report Type: 
  Country: None (occurrence: None)
  Receive Date: 20070426
  Receipt Date: 20070419
  Transmission Date: 20071010
  Serious: Yes (Hospitalization)
  Sender: FDA-Public Use
  Company Number: FR-MERCK-0704FRA00066

PATIENT
  Age: 87 Year
  Sex: Female
  Weight: 47 kg

DRUGS (8)
  1. EMEND [Suspect]
     Indication: PROPHYLAXIS OF NAUSEA AND VOMITING
     Route: 048
     Dates: start: 20070206, end: 20070206
  2. EMEND [Suspect]
     Route: 048
     Dates: start: 20070207, end: 20070208
  3. DEXAMETHASONE [Concomitant]
     Indication: PROPHYLAXIS OF NAUSEA AND VOMITING
     Route: 042
     Dates: start: 20070206
  4. ONDANSETRON [Concomitant]
     Indication: PROPHYLAXIS OF NAUSEA AND VOMITING
     Route: 042
  5. PACLITAXEL [Concomitant]
     Indication: OVARIAN CANCER
     Route: 042
     Dates: start: 20070206
  6. PACLITAXEL [Concomitant]
     Route: 042
     Dates: start: 20070213
  7. CARBOPLATIN [Suspect]
     Indication: OVARIAN CANCER
     Route: 041
     Dates: start: 20070206, end: 20070208
  8. CARBOPLATIN [Suspect]
     Route: 042
     Dates: start: 20070213, end: 20070214

REACTIONS (3)
  - DRUG INTERACTION [None]
  - ERYTHEMA [None]
  - MALAISE [None]
